FAERS Safety Report 6306472-X (Version None)
Quarter: 2009Q3

REPORT INFORMATION
  Report Type: 
  Country: None (occurrence: None)
  Receive Date: 20090812
  Receipt Date: 20090731
  Transmission Date: 20100115
  Serious: Yes (Death, Other)
  Sender: FDA-Public Use
  Company Number: FR-WYE-G04159609

PATIENT
  Sex: Female

DRUGS (4)
  1. EFFEXOR [Suspect]
     Route: 048
     Dates: start: 20030515
  2. METFORMIN [Suspect]
     Route: 048
  3. DEPAMIDE [Suspect]
     Route: 048
  4. MEDIATOR [Suspect]
     Route: 048
     Dates: start: 20021215

REACTIONS (6)
  - AORTIC VALVE INCOMPETENCE [None]
  - HEPATIC FAILURE [None]
  - MITRAL VALVE DISEASE MIXED [None]
  - PULMONARY ARTERIAL HYPERTENSION [None]
  - RIGHT VENTRICULAR FAILURE [None]
  - VENTRICULAR EXTRASYSTOLES [None]
